FAERS Safety Report 6067963-2 (Version None)
Quarter: 2009Q1

REPORT INFORMATION
  Report Type: 
  Country: None (occurrence: None)
  Receive Date: 20090206
  Receipt Date: 20090130
  Transmission Date: 20090719
  Serious: Yes (Hospitalization)
  Sender: FDA-Public Use
  Company Number: US-JNJFOC-20090200327

PATIENT
  Sex: Female
  Weight: 63.5 kg

DRUGS (5)
  1. DURAGESIC-100 [Suspect]
     Dosage: 50 MCG 1 IN 72 HOURS AND 100 MCG 1 IN 72 HOURS
  2. DURAGESIC-100 [Suspect]
     Indication: ARTHRALGIA
     Dosage: 100 + 50 MCG IN 72 HOURS
  3. FENTANYL TRANSDERMAL SYSTEM [Suspect]
     Indication: ARTHRALGIA
     Route: 062
  4. LIDODERM [Concomitant]
     Indication: PAIN
     Dosage: AS NEEDED
     Route: 062
  5. UNSPECIFIED MEDICATION [Concomitant]

REACTIONS (8)
  - BODY HEIGHT DECREASED [None]
  - FALL [None]
  - INADEQUATE ANALGESIA [None]
  - JOINT INJURY [None]
  - OSTEOMYELITIS [None]
  - STAPHYLOCOCCAL INFECTION [None]
  - TENDON RUPTURE [None]
  - WEIGHT DECREASED [None]
